FAERS Safety Report 7829072-9 (Version None)
Quarter: 2011Q4

REPORT INFORMATION
  Report Type: 
  Country: None (occurrence: None)
  Receive Date: 20111020
  Receipt Date: 20111017
  Transmission Date: 20120403
  Serious: Yes (Death, Hospitalization, Disabling, Other)
  Sender: FDA-Public Use
  Company Number: US-TEVA-305698USA

PATIENT
  Sex: Female

DRUGS (3)
  1. METOCLOPRAMIDE HYDROCHLORIDE [Suspect]
     Indication: GASTROINTESTINAL DISORDER
  2. METOCLOPRAMIDE [Suspect]
  3. METOCLOPRAMIDE [Suspect]
     Indication: GASTROINTESTINAL DISORDER

REACTIONS (5)
  - TARDIVE DYSKINESIA [None]
  - NERVOUS SYSTEM DISORDER [None]
  - EXTRAPYRAMIDAL DISORDER [None]
  - STATUS EPILEPTICUS [None]
  - DYSKINESIA [None]
